FAERS Safety Report 17161945 (Version 2)
Quarter: 2019Q4

REPORT INFORMATION
  Report Type: Report from Study
  Country: None (occurrence: BR)
  Receive Date: 20191217
  Receipt Date: 20191220
  Transmission Date: 20200122
  Serious: No
  Sender: FDA-Public Use
  Company Number: BR-ABBVIE-19K-020-3194002-00

PATIENT
  Sex: Male
  Weight: 78 kg

DRUGS (3)
  1. METHOTREXATE. [Concomitant]
     Active Substance: METHOTREXATE
     Indication: PSORIATIC ARTHROPATHY
     Route: 048
  2. HUMIRA [Suspect]
     Active Substance: ADALIMUMAB
     Route: 058
     Dates: start: 20190111, end: 20191106
  3. HUMIRA [Suspect]
     Active Substance: ADALIMUMAB
     Indication: PSORIATIC ARTHROPATHY
     Route: 058
     Dates: end: 2018

REACTIONS (17)
  - Arthralgia [Recovered/Resolved]
  - Muscle fatigue [Not Recovered/Not Resolved]
  - Finger deformity [Not Recovered/Not Resolved]
  - Therapeutic product effect incomplete [Unknown]
  - Hand deformity [Not Recovered/Not Resolved]
  - Psoriasis [Recovered/Resolved]
  - Pain in extremity [Recovered/Resolved]
  - Musculoskeletal pain [Recovered/Resolved]
  - Exostosis [Recovered/Resolved]
  - Rheumatoid factor increased [Unknown]
  - Arthropathy [Recovered/Resolved]
  - Pain [Not Recovered/Not Resolved]
  - Neuritis [Recovered/Resolved]
  - Calcinosis [Recovered/Resolved]
  - Induration [Recovered/Resolved]
  - Mobility decreased [Recovered/Resolved]
  - Pain [Not Recovered/Not Resolved]

NARRATIVE: CASE EVENT DATE: 2018
